FAERS Safety Report 13562160 (Version 1)
Quarter: 2017Q2

REPORT INFORMATION
  Report Type: Spontaneous
  Country: FR (occurrence: FR)
  Receive Date: 20170519
  Receipt Date: 20170519
  Transmission Date: 20170830
  Serious: Yes (Other)
  Sender: FDA-Public Use
  Company Number: FR-ASTRAZENECA-2017SE51994

PATIENT
  Age: 754 Month
  Sex: Male

DRUGS (10)
  1. PROGRAF [Concomitant]
     Active Substance: TACROLIMUS\TACROLIMUS ANHYDROUS
  2. ACEBUTOLOL [Concomitant]
     Active Substance: ACEBUTOLOL
     Indication: ANGINA PECTORIS
     Dates: end: 20160630
  3. COLCHICINE. [Concomitant]
     Active Substance: COLCHICINE
  4. NOVONORM [Concomitant]
     Active Substance: REPAGLINIDE
  5. DUOPLAVIN [Concomitant]
     Active Substance: ASPIRIN\CLOPIDOGREL
     Indication: THROMBOSIS PROPHYLAXIS
     Dosage: 75 MG
     Dates: start: 20151005
  6. KARDEGIC [Concomitant]
     Active Substance: ASPIRIN LYSINE
     Indication: THROMBOSIS PROPHYLAXIS
     Dates: start: 20160622
  7. CRESTOR [Suspect]
     Active Substance: ROSUVASTATIN CALCIUM
     Indication: HYPERCHOLESTEROLAEMIA
     Route: 048
     Dates: start: 20151012, end: 201606
  8. SOLUPRED [Concomitant]
     Active Substance: PREDNISOLONE
  9. ATACAND [Concomitant]
     Active Substance: CANDESARTAN CILEXETIL
  10. INEXIUM [Concomitant]
     Active Substance: ESOMEPRAZOLE

REACTIONS (2)
  - Tongue disorder [Recovered/Resolved]
  - Dermatitis bullous [Recovered/Resolved]

NARRATIVE: CASE EVENT DATE: 201605
